FAERS Safety Report 12925288 (Version 1)
Quarter: 2016Q4

REPORT INFORMATION
  Report Type: Spontaneous
  Country: US (occurrence: US)
  Receive Date: 20161108
  Receipt Date: 20161108
  Transmission Date: 20170207
  Serious: No
  Sender: FDA-Public Use
  Company Number: US-SA-2016SA147636

PATIENT
  Age: 66 Year
  Sex: Male

DRUGS (2)
  1. PRALUENT [Suspect]
     Active Substance: ALIROCUMAB
     Route: 065
     Dates: start: 20160721, end: 20160804
  2. ALIROCUMAB PREFILLED PEN [Concomitant]
     Active Substance: ALIROCUMAB
     Dates: start: 20160721, end: 20160804

REACTIONS (5)
  - Back pain [Unknown]
  - Pain [Unknown]
  - Rash papular [Unknown]
  - Urticaria [Unknown]
  - Erythema [Unknown]

NARRATIVE: CASE EVENT DATE: 20160805
